FAERS Safety Report 19108729 (Version 2)
Quarter: 2021Q2

REPORT INFORMATION
  Report Type: Report from Study
  Country: US (occurrence: US)
  Receive Date: 20210408
  Receipt Date: 20210426
  Transmission Date: 20210717
  Serious: Yes (Hospitalization)
  Sender: FDA-Public Use
  Company Number: US-REGENERON PHARMACEUTICALS, INC.-2021-39516

PATIENT

DRUGS (5)
  1. DIAZEPAM. [Concomitant]
     Active Substance: DIAZEPAM
     Indication: PRODUCT USED FOR UNKNOWN INDICATION
     Dosage: UNK
     Route: 065
  2. VITAMINS [Concomitant]
     Active Substance: VITAMINS
     Indication: PRODUCT USED FOR UNKNOWN INDICATION
     Dosage: UNK
     Route: 065
  3. TIZANIDINE. [Concomitant]
     Active Substance: TIZANIDINE
     Indication: PRODUCT USED FOR UNKNOWN INDICATION
     Dosage: UNK
     Route: 065
  4. CASIRIVIMAB AND IMDEVIMAB [Suspect]
     Active Substance: CASIRIVIMAB\IMDEVIMAB
     Indication: COVID-19
     Dosage: UNK
     Route: 042
     Dates: start: 20210331, end: 20210331
  5. SYMBICORT [Concomitant]
     Active Substance: BUDESONIDE\FORMOTEROL FUMARATE DIHYDRATE
     Indication: PRODUCT USED FOR UNKNOWN INDICATION
     Dosage: UNK
     Route: 065

REACTIONS (23)
  - Logorrhoea [Unknown]
  - Heart rate increased [Unknown]
  - Unresponsive to stimuli [Unknown]
  - Restlessness [Unknown]
  - Erythema [Not Recovered/Not Resolved]
  - Seizure [Unknown]
  - Flushing [Not Recovered/Not Resolved]
  - Insomnia [Unknown]
  - Ear discomfort [Not Recovered/Not Resolved]
  - Lip swelling [Not Recovered/Not Resolved]
  - Tremor [Unknown]
  - Defaecation urgency [Unknown]
  - Feeling hot [Unknown]
  - Loss of consciousness [Unknown]
  - Acne [Unknown]
  - Swelling face [Not Recovered/Not Resolved]
  - Burning sensation [Unknown]
  - Heart rate decreased [Unknown]
  - Micturition urgency [Unknown]
  - Vomiting [Unknown]
  - Pruritus [Not Recovered/Not Resolved]
  - Abdominal discomfort [Unknown]
  - Disorientation [Unknown]

NARRATIVE: CASE EVENT DATE: 20210331
